FAERS Safety Report 19025879 (Version 1)
Quarter: 2021Q1

REPORT INFORMATION
  Report Type: Spontaneous
  Country: US (occurrence: US)
  Receive Date: 20210316
  Receipt Date: 20210316
  Transmission Date: 20210420
  Serious: Yes (Hospitalization)
  Sender: FDA-Public Use
  Company Number: None

PATIENT
  Age: 91 Year
  Sex: Male
  Weight: 80.74 kg

DRUGS (1)
  1. METOPROLOL (METOPROLOL TARTRATE) 50MG [Suspect]
     Active Substance: METOPROLOL TARTRATE
     Indication: HYPERTENSION
     Route: 048
     Dates: start: 20100107, end: 20200103

REACTIONS (3)
  - Seizure [None]
  - Bradycardia [None]
  - Syncope [None]

NARRATIVE: CASE EVENT DATE: 20210103
